FAERS Safety Report 24770133 (Version 1)
Quarter: 2024Q4

REPORT INFORMATION
  Report Type: Spontaneous
  Country: US (occurrence: US)
  Receive Date: 20241224
  Receipt Date: 20241224
  Transmission Date: 20250114
  Serious: No
  Sender: GLAXOSMITHKLINE
  Company Number: US-GSKCCFUS-Case-02159922_AE-119032

PATIENT
  Age: 67 Year
  Sex: Female

DRUGS (1)
  1. LAMICTAL XR [Suspect]
     Active Substance: LAMOTRIGINE
     Indication: Depression
     Dosage: 50 MG
     Dates: start: 20241029, end: 20241118

REACTIONS (3)
  - Rash macular [Unknown]
  - Skin discolouration [Unknown]
  - Erythema [Unknown]

NARRATIVE: CASE EVENT DATE: 20241118
